FAERS Safety Report 6212071-0 (Version None)
Quarter: 2009Q2

REPORT INFORMATION
  Report Type: 
  Country: None (occurrence: None)
  Receive Date: 20090602
  Receipt Date: 20090602
  Transmission Date: 20091009
  Serious: Yes (Hospitalization)
  Sender: FDA-Public Use
  Company Number: US-EISAI INC.-E7867-00021-CLI-US

PATIENT
  Sex: Female
  Weight: 61 kg

DRUGS (8)
  1. GLIADEL [Suspect]
     Route: 018
     Dates: start: 20081117
  2. LEVOTHYROXINE [Concomitant]
  3. DYAZIDE [Concomitant]
  4. SIMVASTATIN [Concomitant]
  5. MONTELUKAST [Concomitant]
  6. COLACE [Concomitant]
  7. PROTONIX [Concomitant]
  8. CETIRIZINE [Concomitant]

REACTIONS (2)
  - INTRACRANIAL HYPOTENSION [None]
  - SOFT TISSUE NECROSIS [None]
